FAERS Safety Report 8012872-2 (Version None)
Quarter: 2011Q4

REPORT INFORMATION
  Report Type: 
  Country: None (occurrence: None)
  Receive Date: 20111229
  Receipt Date: 20111227
  Transmission Date: 20120403
  Serious: Yes (Life-Threatening, Hospitalization)
  Sender: FDA-Public Use
  Company Number: DE-B.I. PHARMACEUTICALS,INC./RIDGEFIELD-2011-DE-06707DE

PATIENT
  Sex: Female
  Weight: 70 kg

DRUGS (9)
  1. TORSEMIDE [Concomitant]
     Dosage: 1 ANZ
  2. SPASMEX [Concomitant]
     Dosage: 2 ANZ
  3. MARCUMAR [Concomitant]
     Dosage: 0.5 ANZ
  4. MELPERON [Concomitant]
     Dosage: 5 ML
  5. ISOPTIN [Concomitant]
     Dosage: 1 ANZ
  6. PANTOPRAZOLE SODIUM [Concomitant]
     Dosage: 2 ANZ
  7. KALINOR BRAUSE [Concomitant]
     Dosage: AS REQUIRED
  8. PRADAXA [Suspect]
     Indication: ATRIAL FIBRILLATION
     Dosage: 220 MG
     Route: 048
  9. PRADAXA [Suspect]

REACTIONS (7)
  - LABORATORY TEST ABNORMAL [None]
  - ACUTE RESPIRATORY FAILURE [None]
  - ABDOMINAL PAIN LOWER [None]
  - URINARY TRACT INFECTION [None]
  - ANASTOMOTIC HAEMORRHAGE [None]
  - SHOCK [None]
  - TACHYCARDIA [None]
